FAERS Safety Report 4274998-9 (Version None)
Quarter: 2004Q1

REPORT INFORMATION
  Report Type: 
  Country: None (occurrence: None)
  Receive Date: 20040116
  Receipt Date: 20040106
  Transmission Date: 20041129
  Serious: Yes (Disabling)
  Sender: FDA-Public Use
  Company Number: 203819

PATIENT
  Age: 74 Year

DRUGS (1)
  1. RITUXAN [Suspect]
     Indication: MANTLE CELL LYMPHOMA
     Dosage: INTRAVENOUS
     Route: 042
     Dates: end: 20031201

REACTIONS (1)
  - BLOOD CREATININE INCREASED [None]
